FAERS Safety Report 12677054 (Version 1)
Quarter: 2016Q3

REPORT INFORMATION
  Report Type: Spontaneous
  Country: US (occurrence: US)
  Receive Date: 20160823
  Receipt Date: 20160823
  Transmission Date: 20161109
  Serious: No
  Sender: FDA-Public Use
  Company Number: US-MYLANLABS-2016M1016124

PATIENT
  Sex: Female

DRUGS (1)
  1. CLONIDINE. [Suspect]
     Active Substance: CLONIDINE
     Route: 062

REACTIONS (5)
  - Anxiety [Unknown]
  - Panic attack [Unknown]
  - Feeling abnormal [Unknown]
  - Dyspnoea [Unknown]
  - Hallucination [Unknown]
